FAERS Safety Report 21978497 (Version 1)
Quarter: 2023Q1

REPORT INFORMATION
  Report Type: Spontaneous
  Country: FR (occurrence: FR)
  Receive Date: 20230210
  Receipt Date: 20230210
  Transmission Date: 20230418
  Serious: Yes (Death)
  Sender: FDA-Public Use
  Company Number: None

PATIENT
  Age: 26 Year
  Sex: Male
  Weight: 78 kg

DRUGS (4)
  1. DARUNAVIR [Suspect]
     Active Substance: DARUNAVIR
     Indication: HIV infection
     Dosage: NOT KNOWN
     Route: 065
     Dates: start: 20220520
  2. BIKTARVY [Suspect]
     Active Substance: BICTEGRAVIR SODIUM\EMTRICITABINE\TENOFOVIR ALAFENAMIDE FUMARATE
     Indication: HIV infection
     Dosage: NOT KNOWN
     Route: 065
     Dates: start: 20220520
  3. NORVIR [Concomitant]
     Active Substance: RITONAVIR
     Indication: HIV infection
     Dosage: NOT KNOWN
     Route: 065
     Dates: start: 20220520
  4. AZITHROMYCIN [Concomitant]
     Active Substance: AZITHROMYCIN
     Indication: Orchitis
     Dosage: 4 CP
     Route: 065
     Dates: start: 20220505, end: 20220505

REACTIONS (1)
  - Ventricular fibrillation [Fatal]

NARRATIVE: CASE EVENT DATE: 20220527
